FAERS Safety Report 22187170 (Version 1)
Quarter: 2023Q2

REPORT INFORMATION
  Report Type: Spontaneous
  Country: ZA (occurrence: ZA)
  Receive Date: 20230407
  Receipt Date: 20230407
  Transmission Date: 20230721
  Serious: Yes (Other)
  Sender: FDA-Public Use
  Company Number: ZA-PFIZER INC-PV202300062462

PATIENT
  Age: 40 Year
  Sex: Male
  Weight: 161.1 kg

DRUGS (1)
  1. METHOTREXATE SODIUM [Suspect]
     Active Substance: METHOTREXATE SODIUM
     Indication: Rheumatoid arthritis
     Dosage: 12.5 MG, WEEKLY
     Dates: start: 201401

REACTIONS (2)
  - Alanine aminotransferase increased [Recovering/Resolving]
  - Interferon gamma release assay positive [Unknown]

NARRATIVE: CASE EVENT DATE: 20200105
